FAERS Safety Report 6721891-5 (Version None)
Quarter: 2010Q2

REPORT INFORMATION
  Report Type: 
  Country: None (occurrence: None)
  Receive Date: 20100512
  Receipt Date: 20100429
  Transmission Date: 20101027
  Serious: Yes (Other)
  Sender: FDA-Public Use
  Company Number: BR-CUBIST-2010S1000232

PATIENT
  Age: 51 Year
  Sex: Male
  Weight: 65.7 kg

DRUGS (2)
  1. CUBICIN [Suspect]
     Indication: DRUG USE FOR UNKNOWN INDICATION
     Route: 042
     Dates: start: 20090901, end: 20090927
  2. CUBICIN [Suspect]
     Route: 042
     Dates: start: 20090901, end: 20090927

REACTIONS (1)
  - METABOLIC SYNDROME [None]
